FAERS Safety Report 10301400 (Version 1)
Quarter: 2014Q3

REPORT INFORMATION
  Report Type: Spontaneous
  Country: US (occurrence: None)
  Receive Date: 20140709
  Receipt Date: 20140709
  Transmission Date: 20150326
  Serious: Yes (Hospitalization)
  Sender: FDA-Public Use
  Company Number: None

PATIENT
  Age: 79 Year
  Sex: Male
  Weight: 76.8 kg

DRUGS (2)
  1. HYDROCHLOROTHIAZIDE. [Suspect]
     Active Substance: HYDROCHLOROTHIAZIDE
     Indication: HYPERTENSION
     Dosage: 12.5 MG AM  PO
     Route: 048
     Dates: start: 20140328, end: 20140624
  2. SULFAMETHOXAZOLE/TRIMETHOPRIM [Suspect]
     Active Substance: SULFAMETHOXAZOLE\TRIMETHOPRIM
     Indication: URINARY TRACT INFECTION
     Dosage: 1 TAB  BID  PO
     Route: 048
     Dates: start: 20140606, end: 20140616

REACTIONS (4)
  - Hypoglycaemia [None]
  - Hyponatraemia [None]
  - Asthenia [None]
  - Gastrointestinal pain [None]

NARRATIVE: CASE EVENT DATE: 20140620
